FAERS Safety Report 10594726 (Version 1)
Quarter: 2014Q4

REPORT INFORMATION
  Report Type: Spontaneous
  Country: DE (occurrence: DE)
  Receive Date: 20141120
  Receipt Date: 20141120
  Transmission Date: 20150529
  Serious: Yes (Hospitalization)
  Sender: FDA-Public Use
  Company Number: DE-DRREDDYS-GER/GER/14/0044327

PATIENT
  Age: 60 Year
  Sex: Female

DRUGS (4)
  1. SERTRALINE [Suspect]
     Active Substance: SERTRALINE HYDROCHLORIDE
     Indication: PRODUCT USED FOR UNKNOWN INDICATION
     Route: 048
     Dates: start: 20140608, end: 20140616
  2. DIPIPERON [Suspect]
     Active Substance: PIPAMPERONE
     Indication: PRODUCT USED FOR UNKNOWN INDICATION
     Route: 048
     Dates: start: 20140606, end: 20140618
  3. CYMBALTA [Suspect]
     Active Substance: DULOXETINE HYDROCHLORIDE
     Indication: PRODUCT USED FOR UNKNOWN INDICATION
     Route: 048
  4. CYMBALTA [Suspect]
     Active Substance: DULOXETINE HYDROCHLORIDE
     Route: 048
     Dates: start: 20140625

REACTIONS (1)
  - Generalised tonic-clonic seizure [Recovered/Resolved]

NARRATIVE: CASE EVENT DATE: 20140617
